FAERS Safety Report 23498441 (Version 1)
Quarter: 2024Q1

REPORT INFORMATION
  Report Type: Spontaneous
  Country: US (occurrence: None)
  Receive Date: 20240208
  Receipt Date: 20240208
  Transmission Date: 20240409
  Serious: Yes (Hospitalization)
  Sender: FDA-Public Use
  Company Number: None

PATIENT
  Sex: Male
  Weight: 84.6 kg

DRUGS (2)
  1. XELODA [Suspect]
     Active Substance: CAPECITABINE
  2. OXALIPLATIN (ELOXATIN) 250MG [Concomitant]

REACTIONS (4)
  - Small intestinal obstruction [None]
  - Enteritis [None]
  - Tachycardia [None]
  - Haemoglobin decreased [None]

NARRATIVE: CASE EVENT DATE: 20240122
